FAERS Safety Report 5833775-5 (Version None)
Quarter: 2008Q3

REPORT INFORMATION
  Report Type: 
  Country: None (occurrence: None)
  Receive Date: 20080804
  Receipt Date: 20080804
  Transmission Date: 20090109
  Serious: No
  Sender: FDA-Public Use
  Company Number: None

PATIENT
  Age: 39 Year
  Sex: Male
  Weight: 66.6788 kg

DRUGS (2)
  1. LORAZEPAM [Suspect]
     Indication: ANXIETY
     Dosage: 150 EVERY 4 TO 6 HOURS PO
     Route: 048
     Dates: start: 20070811, end: 20080801
  2. LORAZEPAM [Suspect]
     Indication: STRESS
     Dosage: 150 EVERY 4 TO 6 HOURS PO
     Route: 048
     Dates: start: 20070811, end: 20080801

REACTIONS (3)
  - PRURITUS [None]
  - RASH [None]
  - SKIN DISCOLOURATION [None]
